FAERS Safety Report 8258335-0 (Version None)
Quarter: 2012Q2

REPORT INFORMATION
  Report Type: 
  Country: None (occurrence: None)
  Receive Date: 20120404
  Receipt Date: 20120322
  Transmission Date: 20120825
  Serious: No
  Sender: FDA-Public Use
  Company Number: US-B.I. PHARMACEUTICALS,INC./RIDGEFIELD-2012-BP-05473BP

PATIENT
  Sex: Female

DRUGS (4)
  1. PRADAXA [Suspect]
     Indication: ATRIAL FIBRILLATION
     Dosage: 300 MG
     Route: 048
     Dates: start: 20120314
  2. AMIODARONE HCL [Concomitant]
     Indication: ATRIAL FIBRILLATION
     Dosage: 400 MG
     Route: 048
     Dates: start: 20120314
  3. LOPRESSOR [Concomitant]
     Indication: HYPERTENSION
     Dosage: 50 MG
     Route: 048
     Dates: start: 20080101
  4. ASPIRIN [Concomitant]
     Indication: ATRIAL FIBRILLATION
     Dosage: 81 MG
     Route: 048
     Dates: start: 20120314

REACTIONS (3)
  - BLOOD URINE PRESENT [None]
  - VITREOUS FLOATERS [None]
  - DIZZINESS POSTURAL [None]
